FAERS Safety Report 15968391 (Version 2)
Quarter: 2019Q2

REPORT INFORMATION
  Report Type: Spontaneous
  Country: US (occurrence: US)
  Receive Date: 20190215
  Receipt Date: 20190503
  Transmission Date: 20190711
  Serious: Yes (Life-Threatening, Other)
  Sender: FDA-Public Use
  Company Number: US-VIFOR (INTERNATIONAL) INC.-VIT-2019-01414

PATIENT
  Age: 51 Year
  Sex: Female
  Weight: 70 kg

DRUGS (14)
  1. CYCLOBENZAPRINE. [Concomitant]
     Active Substance: CYCLOBENZAPRINE
     Indication: MUSCLE SPASMS
     Route: 048
  2. METOPROLOL TARTRATE. [Concomitant]
     Active Substance: METOPROLOL TARTRATE
     Route: 048
  3. HYDROCORTISONE CREAM [Concomitant]
     Active Substance: HYDROCORTISONE
     Dosage: USE AS DIRECTED. APPLY EXTERNALLY TO THE AFFECTED AREA.
  4. NIFEDICAL XL [Concomitant]
     Active Substance: NIFEDIPINE
     Route: 048
  5. RENVELA [Concomitant]
     Active Substance: SEVELAMER CARBONATE
     Route: 048
  6. FAMOTIDINE. [Concomitant]
     Active Substance: FAMOTIDINE
     Route: 048
  7. FLUOXETINE [Concomitant]
     Active Substance: FLUOXETINE HYDROCHLORIDE
     Route: 048
  8. GABAPENTIN. [Concomitant]
     Active Substance: GABAPENTIN
     Route: 048
  9. ONDANSETRON HCL [Concomitant]
     Active Substance: ONDANSETRON HYDROCHLORIDE
     Indication: NAUSEA
     Route: 048
  10. MIRCERA [Suspect]
     Active Substance: METHOXY POLYETHYLENE GLYCOL-EPOETIN BETA
     Indication: NEPHROGENIC ANAEMIA
     Route: 040
     Dates: start: 20180508, end: 20180508
  11. ALBUTEROL SULFATE HFA [Concomitant]
     Active Substance: ALBUTEROL SULFATE
     Indication: WHEEZING
     Dosage: 90 MCG/PUFF. USE 2 PUFF EVERY FOUR HOURS AS NEEDED.
  12. DIALYVITE 800 [Concomitant]
     Route: 048
  13. NORTRIPTYLINE [Concomitant]
     Active Substance: NORTRIPTYLINE
  14. TRAZODONE [Concomitant]
     Active Substance: TRAZODONE HYDROCHLORIDE
     Route: 048

REACTIONS (4)
  - Urticaria [Recovered/Resolved]
  - Dyspnoea [Recovered/Resolved]
  - Restlessness [Recovered/Resolved]
  - Pruritus generalised [Recovered/Resolved]

NARRATIVE: CASE EVENT DATE: 20180508
